FAERS Safety Report 5158341-9 (Version None)
Quarter: 2006Q4

REPORT INFORMATION
  Report Type: 
  Country: None (occurrence: None)
  Receive Date: 20061128
  Receipt Date: 20061113
  Transmission Date: 20070319
  Serious: Yes (Hospitalization)
  Sender: FDA-Public Use
  Company Number: FR-JNJFOC-20061105260

PATIENT
  Age: 41 Year
  Sex: Female

DRUGS (10)
  1. ACETAMINOPHEN AND TRAMADOL HCL [Suspect]
     Indication: DRUG USE FOR UNKNOWN INDICATION
     Route: 048
  2. INDOCID [Suspect]
     Indication: ANKYLOSING SPONDYLITIS
     Route: 048
  3. METHOTREXATE [Suspect]
     Indication: ANKYLOSING SPONDYLITIS
     Route: 048
  4. REMICADE [Suspect]
     Indication: ANKYLOSING SPONDYLITIS
     Route: 042
  5. CORTANCYL [Suspect]
     Indication: DRUG USE FOR UNKNOWN INDICATION
     Route: 048
  6. OMEPRAZOLE [Concomitant]
     Route: 065
  7. TOPALGIC [Concomitant]
     Route: 065
  8. ENBREL [Concomitant]
     Route: 065
  9. SPECIAFOLDINE [Concomitant]
     Route: 065
  10. ANTI TNF (TUMOUR NECROSIS FACTOR) ALPHA [Concomitant]
     Route: 065

REACTIONS (1)
  - LYMPH NODE TUBERCULOSIS [None]
